FAERS Safety Report 9787277 (Version 1)
Quarter: 2013Q4

REPORT INFORMATION
  Report Type: Spontaneous
  Country: US (occurrence: US)
  Receive Date: 20131230
  Receipt Date: 20131230
  Transmission Date: 20140711
  Serious: No
  Sender: FDA-Public Use
  Company Number: US-GE HEALTHCARE MEDICAL DIAGNOSTICS-VISP-PR-1312S-0953

PATIENT
  Age: 70 Year
  Sex: Female
  Weight: 70.37 kg

DRUGS (7)
  1. VISIPAQUE [Suspect]
     Indication: OVARIAN CANCER
     Route: 042
     Dates: start: 20130822, end: 20130822
  2. VISIPAQUE [Suspect]
     Indication: DIAGNOSTIC PROCEDURE
  3. ALTACE [Concomitant]
  4. LOVAZA [Concomitant]
  5. METFORMIN [Concomitant]
  6. METOPROLOL [Concomitant]
  7. VYTORIN [Concomitant]

REACTIONS (1)
  - Urticaria [Recovered/Resolved]
